FAERS Safety Report 8245276-8 (Version None)
Quarter: 2012Q1

REPORT INFORMATION
  Report Type: 
  Country: None (occurrence: None)
  Receive Date: 20120329
  Receipt Date: 20120319
  Transmission Date: 20120608
  Serious: Yes (Other)
  Sender: FDA-Public Use
  Company Number: US-ROCHE-798790

PATIENT
  Sex: Female
  Weight: 56.75 kg

DRUGS (1)
  1. ACCUTANE [Suspect]
     Indication: ACNE
     Route: 048
     Dates: start: 20030801, end: 20040201

REACTIONS (4)
  - COLITIS ULCERATIVE [None]
  - GASTRITIS [None]
  - PROCTITIS [None]
  - GALLBLADDER DISORDER [None]
